FAERS Safety Report 21939558 (Version 1)
Quarter: 2023Q1

REPORT INFORMATION
  Report Type: Report from Study
  Country: US (occurrence: US)
  Receive Date: 20230201
  Receipt Date: 20230201
  Transmission Date: 20230417
  Serious: No
  Sender: FDA-Public Use
  Company Number: US-EXELIXIS-CABO-22048015

PATIENT
  Age: 27 Year
  Sex: Female

DRUGS (2)
  1. CABOMETYX [Suspect]
     Active Substance: CABOZANTINIB S-MALATE
     Indication: Bone cancer
     Dosage: 40 MG, QD
     Route: 048
     Dates: start: 20220111
  2. CABOMETYX [Suspect]
     Active Substance: CABOZANTINIB S-MALATE
     Indication: Chondrosarcoma
     Dosage: 20 MG, QD
     Route: 048

REACTIONS (11)
  - Abdominal discomfort [Unknown]
  - Palpitations [Recovered/Resolved]
  - Gastrooesophageal reflux disease [Unknown]
  - Memory impairment [Unknown]
  - Anxiety [Unknown]
  - Insomnia [Unknown]
  - Palmar-plantar erythrodysaesthesia syndrome [Unknown]
  - Diarrhoea [Unknown]
  - Stomatitis [Recovered/Resolved]
  - Fatigue [Unknown]
  - Off label use [Unknown]

NARRATIVE: CASE EVENT DATE: 20220115
